FAERS Safety Report 13113475 (Version 1)
Quarter: 2017Q1

REPORT INFORMATION
  Report Type: Spontaneous
  Country: FR (occurrence: FR)
  Receive Date: 20170113
  Receipt Date: 20170113
  Transmission Date: 20170428
  Serious: Yes (Hospitalization)
  Sender: FDA-Public Use
  Company Number: FR-PFIZER INC-2017010734

PATIENT
  Age: 67 Year
  Sex: Female

DRUGS (15)
  1. SOLUPRED [Suspect]
     Active Substance: PREDNISOLONE
     Dosage: UNK
     Route: 048
     Dates: start: 201612, end: 20161215
  2. LAMALINE [Suspect]
     Active Substance: ACETAMINOPHEN\CAFFEINE\OPIUM
     Indication: PAIN
     Dosage: 1 DF, 3X/DAY
     Dates: end: 20161215
  3. ESOMEPRAZOLE [Concomitant]
     Active Substance: ESOMEPRAZOLE
     Dosage: 40 MG, 2X/DAY
     Route: 048
  4. ALPRAZOLAM. [Concomitant]
     Active Substance: ALPRAZOLAM
     Dosage: 0.5 MG, 1X/DAY
     Route: 048
  5. RENUTRYL BOOSTER [Concomitant]
     Dosage: 1 DF, 1X/DAY
     Route: 048
  6. ENDOXAN [Suspect]
     Active Substance: CYCLOPHOSPHAMIDE
     Indication: LUNG NEOPLASM MALIGNANT
     Dosage: 1580 MG, ONCE
     Route: 042
     Dates: start: 20161206, end: 20161206
  7. ZOPHREN [Suspect]
     Active Substance: ONDANSETRON
     Dosage: 8 MG, ONCE
     Route: 048
     Dates: start: 20161206, end: 20161206
  8. PREDNISOLONE. [Suspect]
     Active Substance: PREDNISOLONE
     Dosage: 80 MG, ONCE
     Route: 048
     Dates: start: 20161206, end: 20161206
  9. KALEORID [Concomitant]
     Active Substance: POTASSIUM CHLORIDE
     Dosage: 1000 MG, 2X/DAY
     Route: 048
  10. GAVISCON [Concomitant]
     Active Substance: ALUMINUM HYDROXIDE\MAGNESIUM CARBONATE
     Dosage: 1 DF, 3X/DAY
     Route: 048
  11. RANITIDINE. [Concomitant]
     Active Substance: RANITIDINE
     Dosage: 150 MG, 1X/DAY
     Route: 048
  12. VINCRISTINE SULFATE. [Suspect]
     Active Substance: VINCRISTINE SULFATE
     Indication: LUNG NEOPLASM MALIGNANT
     Dosage: 1.6 MG, ONCE
     Route: 042
     Dates: start: 20161206, end: 20161206
  13. INNOVAIR [Concomitant]
     Active Substance: BECLOMETHASONE DIPROPIONATE\FORMOTEROL
     Dosage: 1 DF, 2X/DAY
     Route: 055
  14. DOXORUBICIN HCL [Suspect]
     Active Substance: DOXORUBICIN HYDROCHLORIDE
     Indication: LUNG NEOPLASM MALIGNANT
     Dosage: 71 MG, ONCE
     Route: 042
     Dates: start: 20161206, end: 20161206
  15. OLMESARTAN MEDOXOMIL. [Suspect]
     Active Substance: OLMESARTAN MEDOXOMIL
     Indication: HYPERTENSION
     Dosage: 40 MG, DAILY
     Route: 048
     Dates: end: 20161215

REACTIONS (2)
  - Extremity necrosis [Recovered/Resolved]
  - Pancytopenia [Recovering/Resolving]

NARRATIVE: CASE EVENT DATE: 20161213
